FAERS Safety Report 9038154 (Version 1)
Quarter: 2013Q1

REPORT INFORMATION
  Report Type: Spontaneous
  Country: US (occurrence: US)
  Receive Date: 20130129
  Receipt Date: 20130129
  Transmission Date: 20140127
  Serious: No
  Sender: FDA-Public Use
  Company Number: US-GLAXOSMITHKLINE-A0969221A

PATIENT
  Age: 66 Year
  Sex: Female
  Weight: 76.8 kg

DRUGS (11)
  1. WELLBUTRIN [Suspect]
     Indication: DEPRESSION
     Dosage: 100MG THREE TIMES PER DAY
     Route: 065
     Dates: start: 201111
  2. PROZAC [Suspect]
     Indication: DEPRESSION
     Dosage: 20MG THREE TIMES PER DAY
     Route: 065
     Dates: start: 201111
  3. LEVOTHYROXINE [Concomitant]
  4. CLONAZEPAM [Concomitant]
  5. ROPINIROLE [Concomitant]
  6. DEHYDROEPIANDROSTERONE [Concomitant]
  7. COENZYME Q 10 [Concomitant]
  8. VITAMIN D [Concomitant]
  9. HYDROXYCHLOROQUINE [Concomitant]
  10. FOLIC ACID [Concomitant]
  11. FISH OIL [Concomitant]

REACTIONS (1)
  - Drug ineffective [Unknown]
